FAERS Safety Report 12280407 (Version 1)
Quarter: 2016Q2

REPORT INFORMATION
  Report Type: Spontaneous
  Country: US (occurrence: US)
  Receive Date: 20160419
  Receipt Date: 20160419
  Transmission Date: 20160815
  Serious: No
  Sender: FDA-Public Use
  Company Number: US-009507513-1604USA008973

PATIENT
  Age: 26 Year
  Sex: Female
  Weight: 81.63 kg

DRUGS (1)
  1. NUVARING [Suspect]
     Active Substance: ETHINYL ESTRADIOL\ETONOGESTREL
     Indication: CONTRACEPTION
     Dosage: 3 WEEKS IN, 1 WEEK OUT
     Route: 067
     Dates: start: 201510

REACTIONS (2)
  - Vulvovaginal discomfort [Unknown]
  - Product quality issue [Unknown]

NARRATIVE: CASE EVENT DATE: 20160410
